FAERS Safety Report 24401196 (Version 1)
Quarter: 2024Q4

REPORT INFORMATION
  Report Type: Spontaneous
  Country: GB (occurrence: GB)
  Receive Date: 20241007
  Receipt Date: 20241007
  Transmission Date: 20250115
  Serious: Yes (Other)
  Sender: UCB
  Company Number: GB-UCBSA-2024045576

PATIENT
  Age: 28 Year
  Sex: Female

DRUGS (1)
  1. BIMZELX [Suspect]
     Active Substance: BIMEKIZUMAB-BKZX
     Indication: Psoriasis
     Dosage: UNK (NO. OF DOSES RECEIVED: 4)
     Route: 058
     Dates: start: 20230201, end: 20230601

REACTIONS (2)
  - Cyst [Recovered/Resolved with Sequelae]
  - Acne [Recovered/Resolved]

NARRATIVE: CASE EVENT DATE: 20230301
